FAERS Safety Report 7521908-4 (Version None)
Quarter: 2011Q2

REPORT INFORMATION
  Report Type: 
  Country: None (occurrence: None)
  Receive Date: 20110603
  Receipt Date: 20110527
  Transmission Date: 20111010
  Serious: Yes (Other)
  Sender: FDA-Public Use
  Company Number: FR-BRISTOL-MYERS SQUIBB COMPANY-15617731

PATIENT
  Age: 67 Year
  Sex: Female
  Weight: 105 kg

DRUGS (6)
  1. FUROSEMIDE [Concomitant]
     Indication: HYPERTENSION
  2. METFORMIN HCL [Concomitant]
     Indication: TYPE 2 DIABETES MELLITUS
  3. GLIMEPIRIDE [Concomitant]
     Indication: TYPE 2 DIABETES MELLITUS
  4. AMLODIPINE [Concomitant]
     Indication: HYPERTENSION
  5. ONGLYZA [Suspect]
     Indication: TYPE 2 DIABETES MELLITUS
     Dates: start: 20110121, end: 20110202
  6. LOSARTAN POTASSIUM + HCTZ [Concomitant]
     Indication: HYPERTENSION
     Dosage: 1DF=(100MG/25MG) ONE TABLET/D

REACTIONS (3)
  - DISCOMFORT [None]
  - OBSTRUCTIVE AIRWAYS DISORDER [None]
  - DYSPNOEA [None]
